FAERS Safety Report 19277574 (Version 1)
Quarter: 2021Q2

REPORT INFORMATION
  Report Type: Report from Study
  Country: IT (occurrence: IT)
  Receive Date: 20210520
  Receipt Date: 20210520
  Transmission Date: 20210717
  Serious: Yes (Hospitalization)
  Sender: FDA-Public Use
  Company Number: IT-TEVA-2021-IT-1912429

PATIENT
  Age: 53 Year
  Sex: Male

DRUGS (2)
  1. CIPRALEX [Suspect]
     Active Substance: ESCITALOPRAM OXALATE
     Indication: DEPRESSION
     Dosage: 15 ML
     Route: 048
  2. ALPRAZIG 0,75 MG/ML GOCCE ORALI, SOLUZIONE [Suspect]
     Active Substance: ALPRAZOLAM
     Indication: DEPRESSION
     Dosage: 20 ML
     Route: 048

REACTIONS (3)
  - Suicidal ideation [Unknown]
  - Nystagmus [Unknown]
  - Sopor [Unknown]

NARRATIVE: CASE EVENT DATE: 20210422
